FAERS Safety Report 8571648-8 (Version None)
Quarter: 2012Q3

REPORT INFORMATION
  Report Type: 
  Country: None (occurrence: None)
  Receive Date: 20120806
  Receipt Date: 20120725
  Transmission Date: 20120928
  Serious: Yes (Hospitalization)
  Sender: FDA-Public Use
  Company Number: US-BAYER-2011-027883

PATIENT
  Age: 21 Year
  Sex: Female
  Weight: 63 kg

DRUGS (5)
  1. YASMIN [Suspect]
     Indication: PREMENSTRUAL SYNDROME
  2. MAGNESIUM HYDROXIDE TAB [Concomitant]
     Dosage: 30 ML, UNK
  3. TORADOL [Concomitant]
     Dosage: 30 MG, UNK
  4. YASMIN [Suspect]
     Indication: CONTRACEPTION
     Dosage: UNK
     Dates: start: 20061211, end: 20071014
  5. DONNATAL [Concomitant]
     Dosage: 15 ML, UNK

REACTIONS (10)
  - PULMONARY EMBOLISM [None]
  - PLEURAL EFFUSION [None]
  - PAIN [None]
  - ANHEDONIA [None]
  - ANXIETY [None]
  - GENERAL PHYSICAL HEALTH DETERIORATION [None]
  - ABDOMINAL PAIN UPPER [None]
  - INJURY [None]
  - EMOTIONAL DISTRESS [None]
  - ATELECTASIS [None]
